FAERS Safety Report 20991291 (Version 1)
Quarter: 2022Q2

REPORT INFORMATION
  Report Type: Spontaneous
  Country: BR (occurrence: None)
  Receive Date: 20220622
  Receipt Date: 20220622
  Transmission Date: 20220720
  Serious: Yes (Other)
  Sender: FDA-Public Use
  Company Number: BR-ROCHE-3121623

PATIENT
  Sex: Female

DRUGS (5)
  1. RIVOTRIL [Suspect]
     Active Substance: CLONAZEPAM
     Indication: Anxiety
     Route: 065
  2. RIVOTRIL [Suspect]
     Active Substance: CLONAZEPAM
     Indication: Nervousness
  3. RIVOTRIL [Suspect]
     Active Substance: CLONAZEPAM
     Indication: Blood pressure increased
  4. VENLAFAXINE [Concomitant]
     Active Substance: VENLAFAXINE HYDROCHLORIDE
     Indication: Anxiety
     Dosage: 1 TABLET IN THE MORNING
     Route: 048
  5. VALIUM [Concomitant]
     Active Substance: DIAZEPAM
     Route: 065

REACTIONS (5)
  - Nephrolithiasis [Not Recovered/Not Resolved]
  - Cholelithiasis [Not Recovered/Not Resolved]
  - Crying [Unknown]
  - Paraesthesia [Unknown]
  - Muscular weakness [Unknown]
